FAERS Safety Report 5884825-1 (Version None)
Quarter: 2008Q3

REPORT INFORMATION
  Report Type: 
  Country: None (occurrence: None)
  Receive Date: 20080916
  Receipt Date: 20080910
  Transmission Date: 20090109
  Serious: Yes (Other)
  Sender: FDA-Public Use
  Company Number: US-BAYER-200831140NA

PATIENT
  Age: 26 Year
  Sex: Female
  Weight: 77 kg

DRUGS (3)
  1. MIRENA [Suspect]
     Indication: CONTRACEPTION
     Route: 015
     Dates: start: 20080717, end: 20080821
  2. LEVSIN [Concomitant]
     Indication: IRRITABLE BOWEL SYNDROME
     Route: 060
  3. DVET. DHA NOS [Concomitant]
     Indication: IRRITABLE BOWEL SYNDROME
     Route: 048
     Dates: start: 20070101

REACTIONS (4)
  - IUD MIGRATION [None]
  - UTERINE PAIN [None]
  - UTERINE SPASM [None]
  - VAGINAL HAEMORRHAGE [None]
